FAERS Safety Report 4600193-7 (Version None)
Quarter: 2005Q1

REPORT INFORMATION
  Report Type: 
  Country: None (occurrence: None)
  Receive Date: 20050307
  Receipt Date: 20050228
  Transmission Date: 20050727
  Serious: Yes (Other)
  Sender: FDA-Public Use
  Company Number: US-JNJFOC-20050300540

PATIENT
  Age: 58 Year
  Sex: Female

DRUGS (1)
  1. LEVAQUIN [Suspect]
     Route: 049

REACTIONS (1)
  - AGEUSIA [None]
